FAERS Safety Report 18115356 (Version 9)
Quarter: 2021Q2

REPORT INFORMATION
  Report Type: Report from Study
  Country: CA (occurrence: CA)
  Receive Date: 20200805
  Receipt Date: 20210507
  Transmission Date: 20210717
  Serious: Yes (Other)
  Sender: FDA-Public Use
  Company Number: CA-NALPROPION PHARMACEUTICALS INC.-2019-008841

PATIENT

DRUGS (12)
  1. CONTRAVE [Suspect]
     Active Substance: BUPROPION HYDROCHLORIDE\NALTREXONE HYDROCHLORIDE
     Dosage: 90/8 MILLIGRAM, 2 TABLET IN THE MORNING AND 1 TABLET IN THE EVENING, 01/APR/2021 (APPROX)
     Route: 048
     Dates: start: 202104
  2. CONTRAVE [Suspect]
     Active Substance: BUPROPION HYDROCHLORIDE\NALTREXONE HYDROCHLORIDE
     Dosage: STRENGTH: 90 MILLIGRAM/8 MILLIGRAM, 2 TABLETS IN THE MORNING AND 2 TABLETS IN THE EVENING
     Route: 048
     Dates: start: 20191003, end: 20191220
  3. CONTRAVE [Suspect]
     Active Substance: BUPROPION HYDROCHLORIDE\NALTREXONE HYDROCHLORIDE
     Dosage: STRENGTH: 90 MILLIGRAM/8 MILLIGRAM, 1 TABLET IN THE MORNING AND 1 TABLET IN THE EVENING
     Route: 048
     Dates: start: 20190916, end: 20190922
  4. CONTRAVE [Suspect]
     Active Substance: BUPROPION HYDROCHLORIDE\NALTREXONE HYDROCHLORIDE
     Dosage: 90 MILLIGRAM/8 MILLIGRAM, 1 TABLET IN THE MORNING AND 2 TABLETS IN THE EVENING
     Route: 048
     Dates: start: 20200116, end: 202006
  5. PANTOLOC                           /01263201/ [Concomitant]
     Active Substance: PANTOPRAZOLE SODIUM
     Indication: GASTROOESOPHAGEAL REFLUX DISEASE
     Dosage: 1 IN 1 D
     Route: 048
     Dates: start: 202101
  6. CONTRAVE [Suspect]
     Active Substance: BUPROPION HYDROCHLORIDE\NALTREXONE HYDROCHLORIDE
     Dosage: STRENGTH: 90 MILLIGRAM/8 MILLIGRAM, 2 TABLETS IN THE MORNING
     Route: 048
     Dates: start: 20191221, end: 20191222
  7. CONTRAVE [Suspect]
     Active Substance: BUPROPION HYDROCHLORIDE\NALTREXONE HYDROCHLORIDE
     Dosage: 90 /8 MILLIGRAM, 1 TABLET IN THE MORNING AND 2 TABLETS IN THE EVENING, 01/FEB/2021 (APPRX)
     Route: 048
     Dates: start: 202102, end: 202103
  8. CALCIUM MAGNESIUM                  /01412301/ [Suspect]
     Active Substance: CALCIUM\MAGNESIUM
     Indication: SLEEP DISORDER
     Dosage: ABOUT 2 MONTHS AGO FROM THE REPORT ON 24/JUL/2020, STOPPED BEFORE 02/JUL/2020
     Route: 065
     Dates: start: 2020, end: 2020
  9. CONTRAVE [Suspect]
     Active Substance: BUPROPION HYDROCHLORIDE\NALTREXONE HYDROCHLORIDE
     Dosage: STRENGTH: 90 MILLIGRAM/8 MILLIGRAM, 2 TABLETS IN THE MORNING AND 1 TABLET IN THE EVENING
     Route: 048
     Dates: start: 20190923, end: 20191002
  10. CONTRAVE [Suspect]
     Active Substance: BUPROPION HYDROCHLORIDE\NALTREXONE HYDROCHLORIDE
     Dosage: 90 MILLIGRAM/8 MILLIGRAM, 1 TABLET IN THE MORNING AND 1 TABLET IN THE EVENING
     Route: 048
     Dates: start: 20200626
  11. CONTRAVE [Suspect]
     Active Substance: BUPROPION HYDROCHLORIDE\NALTREXONE HYDROCHLORIDE
     Indication: WEIGHT CONTROL
     Dosage: STRENGTH: 90 MG/8 MG, 1 TABLET IN THE MORNING
     Route: 048
     Dates: start: 20190909, end: 20190915
  12. CONTRAVE [Suspect]
     Active Substance: BUPROPION HYDROCHLORIDE\NALTREXONE HYDROCHLORIDE
     Dosage: 90 MILLIGRAM/8 MILLIGRAM, 2 TABLETS IN THE MORNING AND 2 TABLETS IN THE EVENING 15/JAN/2020 (APPROX)
     Route: 048
     Dates: start: 20191224, end: 202001

REACTIONS (46)
  - Food craving [Not Recovered/Not Resolved]
  - Night sweats [Unknown]
  - Oxygen saturation decreased [Unknown]
  - White blood cell count increased [Unknown]
  - Scar pain [Not Recovered/Not Resolved]
  - Stress [Recovering/Resolving]
  - Feeling abnormal [Not Recovered/Not Resolved]
  - Gastrointestinal disorder [Unknown]
  - Starvation [Not Recovered/Not Resolved]
  - Feeling cold [Unknown]
  - Anxiety [Recovered/Resolved]
  - Ill-defined disorder [Unknown]
  - Alcohol intolerance [Not Recovered/Not Resolved]
  - Asthma [Not Recovered/Not Resolved]
  - Pallor [Unknown]
  - Chills [Unknown]
  - Malaise [Not Recovered/Not Resolved]
  - Dry mouth [Not Recovered/Not Resolved]
  - Inability to afford medication [Unknown]
  - Alcohol abuse [Unknown]
  - Gastroenteritis viral [Unknown]
  - Abdominal pain [Unknown]
  - Alcoholic hangover [Unknown]
  - Muscle injury [Unknown]
  - Constipation [Not Recovered/Not Resolved]
  - Fatigue [Unknown]
  - Palpitations [Unknown]
  - Symptom recurrence [Not Recovered/Not Resolved]
  - Negative thoughts [Unknown]
  - Arrhythmia [Recovered/Resolved]
  - Weight increased [Not Recovered/Not Resolved]
  - Hyperphagia [Unknown]
  - Muscle spasms [Unknown]
  - Poor quality sleep [Unknown]
  - Chest discomfort [Unknown]
  - Dizziness [Not Recovered/Not Resolved]
  - Product dose omission in error [Unknown]
  - Pneumonia [Not Recovered/Not Resolved]
  - Food intolerance [Unknown]
  - Mental fatigue [Unknown]
  - Seasonal allergy [Not Recovered/Not Resolved]
  - Mental disorder [Not Recovered/Not Resolved]
  - Lower respiratory tract infection [Unknown]
  - Intentional product use issue [Unknown]
  - Treatment noncompliance [Unknown]
  - Drug titration error [Unknown]

NARRATIVE: CASE EVENT DATE: 2019
